FAERS Safety Report 26099342 (Version 1)
Quarter: 2025Q4

REPORT INFORMATION
  Report Type: Spontaneous
  Country: CN (occurrence: CN)
  Receive Date: 20251128
  Receipt Date: 20251128
  Transmission Date: 20260117
  Serious: Yes (Hospitalization)
  Sender: DIZAL (JIANGSU) PHARMACEUTICAL CO., LTD.
  Company Number: CN-Dizal (Jiangsu) Pharmaceutical Co., Ltd.-2189430

PATIENT
  Age: 66 Year
  Sex: Male
  Weight: 85 kg

DRUGS (1)
  1. SUNVOZERTINIB [Suspect]
     Active Substance: SUNVOZERTINIB
     Indication: Lung neoplasm malignant
     Dates: start: 20250201, end: 20251119

REACTIONS (5)
  - Oedema peripheral [Not Recovered/Not Resolved]
  - Mouth ulceration [Unknown]
  - Nasal ulcer [Unknown]
  - Paronychia [Unknown]
  - Skin disorder [Not Recovered/Not Resolved]
